FAERS Safety Report 7138675-9 (Version None)
Quarter: 2010Q4

REPORT INFORMATION
  Report Type: 
  Country: None (occurrence: None)
  Receive Date: 20101206
  Receipt Date: 20101123
  Transmission Date: 20110411
  Serious: Yes (Hospitalization)
  Sender: FDA-Public Use
  Company Number: BR-MERCK-1011BRA00027

PATIENT
  Age: 7 Year
  Sex: Male
  Weight: 36 kg

DRUGS (5)
  1. SINGULAIR [Suspect]
     Indication: BRONCHITIS
     Route: 048
     Dates: start: 20100810, end: 20101103
  2. SINGULAIR [Suspect]
     Route: 048
     Dates: start: 20101108
  3. SINGULAIR [Suspect]
     Indication: ASTHMA
     Route: 048
     Dates: start: 20100810, end: 20101103
  4. SINGULAIR [Suspect]
     Route: 048
     Dates: start: 20101108
  5. BECLOMETHASONE DIPROPIONATE [Concomitant]
     Indication: RHINITIS ALLERGIC
     Route: 065

REACTIONS (6)
  - COUGH [None]
  - DYSPHONIA [None]
  - DYSPNOEA [None]
  - OVERDOSE [None]
  - PYREXIA [None]
  - THROAT IRRITATION [None]
